FAERS Safety Report 21640198 (Version 1)
Quarter: 2022Q4

REPORT INFORMATION
  Report Type: Spontaneous
  Country: US (occurrence: US)
  Receive Date: 20221124
  Receipt Date: 20221124
  Transmission Date: 20230113
  Serious: No
  Sender: FDA-Public Use
  Company Number: US-SA-SAC20221121001025

PATIENT
  Sex: Male

DRUGS (1)
  1. DUPIXENT [Suspect]
     Active Substance: DUPILUMAB
     Dosage: 300MG OTHER
     Route: 058

REACTIONS (5)
  - Rash [Recovering/Resolving]
  - Pyrexia [Unknown]
  - Hand-foot-and-mouth disease [Unknown]
  - Eye pain [Unknown]
  - Illness [Unknown]
